FAERS Safety Report 5936214-9 (Version None)
Quarter: 2008Q4

REPORT INFORMATION
  Report Type: 
  Country: None (occurrence: None)
  Receive Date: 20081030
  Receipt Date: 20071102
  Transmission Date: 20090506
  Serious: No
  Sender: FDA-Public Use
  Company Number: A0497875A

PATIENT
  Age: 37 Year
  Sex: Male

DRUGS (8)
  1. SEREVENT [Suspect]
     Indication: ASTHMA
     Route: 055
  2. ADVAIR DISKUS 100/50 [Suspect]
     Indication: ASTHMA
     Route: 055
  3. FORADIL [Suspect]
     Route: 065
  4. PREDNISONE TAB [Suspect]
     Route: 065
  5. FLOVENT [Suspect]
     Route: 065
  6. COMBIVENT [Suspect]
     Route: 065
  7. SINGULAIR [Suspect]
     Route: 065
  8. UNKNOWN MEDICATION [Suspect]
     Route: 065

REACTIONS (9)
  - APHONIA [None]
  - ASTHMA [None]
  - CEREBROVASCULAR ACCIDENT [None]
  - DRUG INEFFECTIVE [None]
  - EXPIRED DRUG ADMINISTERED [None]
  - HYPOAESTHESIA [None]
  - PALPITATIONS [None]
  - PHARYNGEAL OEDEMA [None]
  - THERAPEUTIC RESPONSE DECREASED [None]
